FAERS Safety Report 10150659 (Version 1)
Quarter: 2014Q2

REPORT INFORMATION
  Report Type: Spontaneous
  Country: US (occurrence: US)
  Receive Date: 20140502
  Receipt Date: 20140502
  Transmission Date: 20141212
  Serious: Yes (Hospitalization, Other)
  Sender: FDA-Public Use
  Company Number: US-GILEAD-2014-0101491

PATIENT
  Age: 86 Year
  Sex: Female

DRUGS (11)
  1. LETAIRIS [Suspect]
     Indication: PULMONARY HYPERTENSION
     Dosage: 10 MG, QD
     Route: 065
     Dates: start: 20140307
  2. METOPROLOL [Concomitant]
  3. FISH OIL [Concomitant]
  4. GLUCOSAMINE [Concomitant]
  5. VITAMIN C                          /00008001/ [Concomitant]
  6. CALCIUM [Concomitant]
  7. PROAIR                             /00139502/ [Concomitant]
  8. LUMIGAN [Concomitant]
  9. DILTIAZEM [Concomitant]
  10. PRADAXA [Concomitant]
  11. SYNTHROID [Concomitant]

REACTIONS (3)
  - Pneumonia [Unknown]
  - Chronic obstructive pulmonary disease [Unknown]
  - Peripheral swelling [Not Recovered/Not Resolved]
